FAERS Safety Report 17905017 (Version 1)
Quarter: 2020Q2

REPORT INFORMATION
  Report Type: Spontaneous
  Country: US (occurrence: US)
  Receive Date: 20200616
  Receipt Date: 20200616
  Transmission Date: 20200714
  Serious: No
  Sender: FDA-Public Use
  Company Number: US-ROCHE-2353511

PATIENT
  Sex: Female

DRUGS (1)
  1. ACTEMRA [Suspect]
     Active Substance: TOCILIZUMAB
     Indication: RHEUMATOID ARTHRITIS
     Route: 042

REACTIONS (4)
  - Arthralgia [Recovered/Resolved]
  - Peripheral swelling [Recovered/Resolved]
  - Musculoskeletal stiffness [Recovered/Resolved]
  - Herpes zoster [Recovered/Resolved]
